FAERS Safety Report 25009966 (Version 1)
Quarter: 2025Q1

REPORT INFORMATION
  Report Type: Spontaneous
  Country: US (occurrence: None)
  Receive Date: 20250225
  Receipt Date: 20250225
  Transmission Date: 20250408
  Serious: No
  Sender: FDA-CTU
  Company Number: None

PATIENT

DRUGS (2)
  1. METOPROLOL [Suspect]
     Active Substance: METOPROLOL
  2. CAMZYOS [Suspect]
     Active Substance: MAVACAMTEN

REACTIONS (2)
  - Chest pain [None]
  - Visual impairment [None]
